FAERS Safety Report 5693591-4 (Version None)
Quarter: 2008Q2

REPORT INFORMATION
  Report Type: 
  Country: None (occurrence: None)
  Receive Date: 20080401
  Receipt Date: 20080401
  Transmission Date: 20081010
  Serious: Yes (Hospitalization)
  Sender: FDA-Public Use
  Company Number: None

PATIENT
  Age: 54 Year
  Sex: Male
  Weight: 73.94 kg

DRUGS (1)
  1. ETODOLAC [Suspect]
     Indication: PAIN IN EXTREMITY
     Dosage: 300MG TID PO
     Route: 048
     Dates: start: 20071205, end: 20080128

REACTIONS (4)
  - DIARRHOEA [None]
  - MENTAL STATUS CHANGES [None]
  - SOMNOLENCE [None]
  - UPPER GASTROINTESTINAL HAEMORRHAGE [None]
